FAERS Safety Report 6022828-7 (Version None)
Quarter: 2008Q4

REPORT INFORMATION
  Report Type: 
  Country: None (occurrence: None)
  Receive Date: 20081230
  Receipt Date: 20071205
  Transmission Date: 20090506
  Serious: No
  Sender: FDA-Public Use
  Company Number: US-ABBOTT-07P-163-0428053-00

PATIENT
  Sex: Female
  Weight: 56.75 kg

DRUGS (4)
  1. CEFDINIR [Suspect]
     Indication: SINUSITIS
     Route: 048
     Dates: start: 20071115, end: 20071125
  2. NAPROXEN SODIUM [Concomitant]
     Indication: DRUG USE FOR UNKNOWN INDICATION
  3. ESTAZOLAM [Concomitant]
     Indication: DRUG USE FOR UNKNOWN INDICATION
  4. PROBIOTICS [Concomitant]
     Indication: DRUG USE FOR UNKNOWN INDICATION

REACTIONS (2)
  - ABDOMINAL PAIN UPPER [None]
  - ABNORMAL FAECES [None]
